FAERS Safety Report 11258468 (Version 1)
Quarter: 2015Q3

REPORT INFORMATION
  Report Type: Spontaneous
  Country: PL (occurrence: None)
  Receive Date: 20150708
  Receipt Date: 20150708
  Transmission Date: 20151125
  Serious: No
  Sender: FDA-Public Use
  Company Number: PL-LHC-2015079

PATIENT
  Age: 17 Year
  Sex: Female
  Weight: 99 kg

DRUGS (4)
  1. FENTANYL WZF [Concomitant]
  2. NITROUS OXIDE. [Suspect]
     Active Substance: NITROUS OXIDE
     Indication: GENERAL ANAESTHESIA
     Dosage: 60%, INHALATION?
     Route: 055
     Dates: start: 20150121, end: 20150121
  3. SEVORANE (SEVOFLURANE) [Suspect]
     Active Substance: SEVOFLURANE
     Indication: GENERAL ANAESTHESIA
     Dosage: 2%, INHALATION
     Dates: start: 20150121, end: 20150121
  4. PLOFED (PROPOFOL) [Concomitant]

REACTIONS (2)
  - Vomiting [None]
  - Nausea [None]

NARRATIVE: CASE EVENT DATE: 20150121
